FAERS Safety Report 12170768 (Version 3)
Quarter: 2016Q2

REPORT INFORMATION
  Report Type: Spontaneous
  Country: US (occurrence: US)
  Receive Date: 20160311
  Receipt Date: 20160505
  Transmission Date: 20160815
  Serious: No
  Sender: FDA-Public Use
  Company Number: US-LEO PHARMA-240611

PATIENT
  Age: 61 Year
  Sex: Female

DRUGS (2)
  1. RESTASIS [Concomitant]
     Active Substance: CYCLOSPORINE
     Indication: DRY EYE
  2. PICATO [Suspect]
     Active Substance: INGENOL MEBUTATE
     Indication: ACTINIC KERATOSIS
     Route: 061
     Dates: start: 20160307, end: 20160309

REACTIONS (10)
  - Application site vesicles [Recovered/Resolved]
  - Eye pain [Recovered/Resolved]
  - Eye colour change [Recovered/Resolved]
  - Eye irritation [Recovered/Resolved]
  - Application site erythema [Not Recovered/Not Resolved]
  - Multiple use of single-use product [Unknown]
  - Application site exfoliation [Recovered/Resolved]
  - Application site reaction [Recovered/Resolved]
  - Accidental exposure to product [Unknown]
  - Eyelid oedema [Recovered/Resolved]

NARRATIVE: CASE EVENT DATE: 20160308
